FAERS Safety Report 9034410 (Version 1)
Quarter: 2013Q1

REPORT INFORMATION
  Report Type: Spontaneous
  Country: GB (occurrence: None)
  Receive Date: 20130114
  Receipt Date: 20130114
  Transmission Date: 20140127
  Serious: Yes (Other)
  Sender: FDA-Public Use
  Company Number: 2013-00022

PATIENT
  Age: 59 Year
  Sex: Male
  Weight: 93.2 kg

DRUGS (5)
  1. SIMVASTATIN [Suspect]
     Indication: PRODUCT USED FOR UNKNOWN INDICATION
     Dates: start: 20121121
  2. BECLOMETHASONE (BECLOMETASONE) (UNKNOWN)? [Concomitant]
  3. BENDROFLUMETHAZIDE (BENDROFLUMETHAZIDE) (UNKNOWN) [Concomitant]
  4. ERYTHROMYCIN (UNKNOWN) [Concomitant]
  5. SALBUTAMOL (SALBUTAMOL) [Concomitant]

REACTIONS (2)
  - Myalgia [None]
  - Psychomotor hyperactivity [None]
